FAERS Safety Report 4319252-1 (Version None)
Quarter: 2004Q1

REPORT INFORMATION
  Report Type: 
  Country: None (occurrence: None)
  Receive Date: 20040318
  Receipt Date: 20040318
  Transmission Date: 20041129
  Serious: Yes (Life-Threatening)
  Sender: FDA-Public Use
  Company Number: None

PATIENT
  Age: 60 Year
  Sex: Female

DRUGS (1)
  1. HUMIRA [Suspect]
     Indication: RHEUMATOID ARTHRITIS
     Dosage: 40MG EVER 2 WE SUBCUTANEOUS
     Route: 058
     Dates: start: 20031216, end: 20040315

REACTIONS (3)
  - OROPHARYNGEAL SWELLING [None]
  - PRURITUS [None]
  - RHINORRHOEA [None]
